FAERS Safety Report 7285042-3 (Version None)
Quarter: 2011Q1

REPORT INFORMATION
  Report Type: 
  Country: None (occurrence: None)
  Receive Date: 20110204
  Receipt Date: 20110204
  Transmission Date: 20110831
  Serious: Yes (Hospitalization)
  Sender: FDA-Public Use
  Company Number: None

PATIENT
  Age: 72 Year
  Sex: Female
  Weight: 58.9676 kg

DRUGS (2)
  1. FOSAMAX [Suspect]
     Indication: OSTEOPENIA
     Dosage: 10 MG 1 X WEEK ORALLY 047
     Route: 048
     Dates: start: 19990101, end: 20050101
  2. BONIVA [Suspect]
     Indication: OSTEOPENIA
     Dosage: 150 MG 1 X MONTH ORALLY 047
     Route: 048
     Dates: start: 20050101, end: 20100101

REACTIONS (2)
  - STRESS FRACTURE [None]
  - FEMUR FRACTURE [None]
